FAERS Safety Report 8775813 (Version 1)
Quarter: 2012Q4

REPORT INFORMATION
  Report Type: 
  Country: US (occurrence: US)
  Receive Date: 20120910
  Receipt Date: 20120910
  Transmission Date: 20130627
  Serious: Yes (Other)
  Sender: FDA-Public Use
  Company Number: US-ROCHE-1085537

PATIENT

DRUGS (2)
  1. AVASTIN [Suspect]
     Indication: KAPOSI^S SARCOMA
     Dosage: loading dose
     Route: 065
  2. AVASTIN [Suspect]
     Route: 065

REACTIONS (1)
  - Ejection fraction decreased [Recovered/Resolved]
